FAERS Safety Report 16970682 (Version 2)
Quarter: 2019Q4

REPORT INFORMATION
  Report Type: Report from Study
  Country: US (occurrence: US)
  Receive Date: 20191029
  Receipt Date: 20191107
  Transmission Date: 20200122
  Serious: Yes (Hospitalization)
  Sender: FDA-Public Use
  Company Number: US-TAIHO ONCOLOGY  INC-EU-2019-03520

PATIENT
  Age: 69 Year
  Sex: Male
  Weight: 103.51 kg

DRUGS (9)
  1. OXYCODONE [Concomitant]
     Active Substance: OXYCODONE
     Dosage: NI
  2. LONSURF [Suspect]
     Active Substance: TIPIRACIL HYDROCHLORIDE\TRIFLURIDINE
     Indication: RECTAL CANCER METASTATIC
     Dosage: COMPLETED 2 CYCLES
     Route: 048
     Dates: start: 20190727
  3. CARVEDILOL. [Concomitant]
     Active Substance: CARVEDILOL
     Dosage: NI
  4. AMLODIPINE [Concomitant]
     Active Substance: AMLODIPINE BESYLATE
     Dosage: NI
  5. IBUPROFEN. [Concomitant]
     Active Substance: IBUPROFEN
     Dosage: NI
  6. PROCHLORPER [Concomitant]
     Dosage: NI
  7. LONSURF [Suspect]
     Active Substance: TIPIRACIL HYDROCHLORIDE\TRIFLURIDINE
     Indication: RECTAL CANCER
  8. LISINOPRIL. [Concomitant]
     Active Substance: LISINOPRIL
     Dosage: NI
  9. IMODIUM [Concomitant]
     Active Substance: LOPERAMIDE HYDROCHLORIDE
     Dosage: NI

REACTIONS (8)
  - Hypertension [Unknown]
  - White blood cell count decreased [Recovering/Resolving]
  - Dyspnoea [Unknown]
  - Pancytopenia [Recovering/Resolving]
  - Pain [Unknown]
  - Red blood cell count decreased [Not Recovered/Not Resolved]
  - Platelet count decreased [Recovering/Resolving]
  - Atrioventricular block [Unknown]

NARRATIVE: CASE EVENT DATE: 2019
